FAERS Safety Report 11518632 (Version 1)
Quarter: 2015Q3

REPORT INFORMATION
  Report Type: Spontaneous
  Country: US (occurrence: US)
  Receive Date: 20150917
  Receipt Date: 20150917
  Transmission Date: 20151125
  Serious: No
  Sender: FDA-Public Use
  Company Number: US-BAUSCH-BL-2015-002102

PATIENT
  Age: 58 Year
  Sex: Male

DRUGS (1)
  1. FLUOROURACIL 5% [Suspect]
     Active Substance: FLUOROURACIL
     Indication: PHOTODERMATOSIS
     Dates: start: 20141003, end: 201410

REACTIONS (2)
  - Application site swelling [Unknown]
  - Application site pain [Unknown]

NARRATIVE: CASE EVENT DATE: 201410
